FAERS Safety Report 8246248-X (Version None)
Quarter: 2012Q1

REPORT INFORMATION
  Report Type: 
  Country: None (occurrence: None)
  Receive Date: 20120328
  Receipt Date: 20120328
  Transmission Date: 20120608
  Serious: Yes (Other)
  Sender: FDA-Public Use
  Company Number: None

PATIENT
  Age: 61 Year
  Sex: Female
  Weight: 98.4306 kg

DRUGS (1)
  1. KOMBIGLYZE XR [Suspect]
     Indication: DIABETES MELLITUS
     Dosage: 5MG/500MG ONCE-A-DAY BY MOUTH
     Route: 048
     Dates: start: 20120227

REACTIONS (2)
  - FLATULENCE [None]
  - ABDOMINAL DISTENSION [None]
